FAERS Safety Report 24120352 (Version 4)
Quarter: 2025Q1

REPORT INFORMATION
  Report Type: Report from Study
  Country: CA (occurrence: CA)
  Receive Date: 20240722
  Receipt Date: 20250317
  Transmission Date: 20250409
  Serious: Yes (Hospitalization, Other)
  Sender: JOHNSON AND JOHNSON
  Company Number: CA-JNJFOC-20240625735

PATIENT
  Age: 76 Year
  Sex: Female

DRUGS (2)
  1. REMICADE [Suspect]
     Active Substance: INFLIXIMAB
     Indication: Crohn^s disease
     Route: 041
     Dates: end: 20240529
  2. REMICADE [Suspect]
     Active Substance: INFLIXIMAB
     Route: 041
     Dates: start: 20170912, end: 20240829

REACTIONS (8)
  - Vomiting [Not Recovered/Not Resolved]
  - Respiratory disorder [Not Recovered/Not Resolved]
  - Blood iron decreased [Unknown]
  - Small intestinal obstruction [Unknown]
  - Gastrointestinal stoma complication [Unknown]
  - Incorrect drug administration rate [Unknown]
  - Vertigo [Unknown]
  - Weight increased [Unknown]

NARRATIVE: CASE EVENT DATE: 20240314
